FAERS Safety Report 9229162 (Version 1)
Quarter: 2013Q2

REPORT INFORMATION
  Report Type: Spontaneous
  Country: CA (occurrence: CA)
  Receive Date: 20130412
  Receipt Date: 20130412
  Transmission Date: 20140414
  Serious: Yes (Other)
  Sender: FDA-Public Use
  Company Number: CA-WATSON-2013-06335

PATIENT
  Sex: Male

DRUGS (4)
  1. DIAZEPAM (UNKNOWN) [Suspect]
     Indication: PRODUCT USED FOR UNKNOWN INDICATION
     Dosage: 2.5 MG, BID
     Dates: start: 1997
  2. METOCLOPRAMIDE (UNKNOWN) [Suspect]
     Indication: GASTROINTESTINAL DISORDER
     Dosage: UNK, UNKNOWN
     Route: 065
     Dates: start: 1997
  3. ATIVAN [Suspect]
     Indication: ANXIETY
     Dosage: 1 MG, UNKNOWN
     Route: 048
     Dates: start: 1971
  4. ATIVAN [Suspect]
     Dosage: UNK, UNKNOWN
     Route: 042

REACTIONS (2)
  - Myocardial infarction [Recovered/Resolved]
  - Coronary artery disease [Unknown]
